FAERS Safety Report 7496952-6 (Version None)
Quarter: 2011Q2

REPORT INFORMATION
  Report Type: 
  Country: None (occurrence: None)
  Receive Date: 20110523
  Receipt Date: 20100616
  Transmission Date: 20111010
  Serious: Yes (Other)
  Sender: FDA-Public Use
  Company Number: US-PERRIGO-10US010565

PATIENT
  Sex: Male
  Weight: 23.583 kg

DRUGS (3)
  1. ACETAMINOPHEN [Suspect]
     Dosage: 1 TSP, SINGLE
     Route: 048
     Dates: start: 20100613, end: 20100613
  2. ACETAMINOPHEN [Suspect]
     Indication: PYREXIA
     Dosage: 2 TSP, SINGLE
     Route: 048
     Dates: start: 20100612, end: 20100612
  3. ACETAMINOPHEN [Suspect]
     Indication: PYREXIA
     Dosage: 1-2 SUPPOSITORIES, PRN
     Route: 054
     Dates: start: 20100416, end: 20100615

REACTIONS (3)
  - OVERDOSE [None]
  - CONVULSION [None]
  - DRUG ADMINISTRATION ERROR [None]
